FAERS Safety Report 6621913-6 (Version None)
Quarter: 2010Q1

REPORT INFORMATION
  Report Type: 
  Country: None (occurrence: None)
  Receive Date: 20100303
  Receipt Date: 20100216
  Transmission Date: 20100710
  Serious: Yes (Other)
  Sender: FDA-Public Use
  Company Number: 10-000245

PATIENT
  Age: 60 Year
  Sex: Female
  Weight: 59 kg

DRUGS (5)
  1. FEMRING [Suspect]
     Indication: HORMONE REPLACEMENT THERAPY
     Dosage: 0.1MG, QD, VAGINAL
     Route: 067
     Dates: start: 20100115
  2. ESTRACE [Suspect]
     Indication: HORMONE REPLACEMENT THERAPY
     Dosage: 2-3 TIMES PER WEEK, VAGINAL
     Route: 067
     Dates: start: 20080101, end: 20100112
  3. VITAMINS [Concomitant]
  4. CALCIUM (CALCIUM GLUBIONATE) [Concomitant]
  5. MUCINEX [Concomitant]

REACTIONS (3)
  - PRODUCT ADHESION ISSUE [None]
  - VAGINAL STRICTURE [None]
  - VULVOVAGINAL ADHESION [None]
